FAERS Safety Report 8202658-8 (Version None)
Quarter: 2012Q1

REPORT INFORMATION
  Report Type: 
  Country: None (occurrence: None)
  Receive Date: 20120312
  Receipt Date: 20120308
  Transmission Date: 20120608
  Serious: Yes (Life-Threatening, Hospitalization, Other)
  Sender: FDA-Public Use
  Company Number: PHHY2012GB020122

PATIENT
  Age: 78 Year
  Sex: Female

DRUGS (8)
  1. RIVASTIGMINE [Suspect]
     Dosage: 2 DF, Q12H
     Route: 048
     Dates: start: 20111205
  2. HYDROCORTISONE [Concomitant]
     Indication: ADDISON'S DISEASE
     Dosage: 25 MG, QD
     Route: 048
  3. WARFARIN SODIUM [Suspect]
  4. ATORVASTATIN [Concomitant]
     Indication: BLOOD CHOLESTEROL
     Dosage: 10 MG, UNK
     Route: 048
  5. ENALAPRIL MALEATE [Concomitant]
     Indication: HYPERTENSION
     Dosage: 20 MG, QD
     Route: 048
  6. ATENOLOL [Concomitant]
     Indication: HYPERTENSION
     Dosage: 100 MG, UNK
     Route: 048
  7. AMLODIPINE [Concomitant]
     Indication: HYPERTENSION
     Dosage: 5 MG, UNK
     Route: 048
  8. FLUDROCORTISONE ACETATE [Concomitant]
     Indication: ADDISON'S DISEASE
     Dosage: 0.1 MG, QD
     Route: 048

REACTIONS (3)
  - INTERNATIONAL NORMALISED RATIO INCREASED [None]
  - DRUG INTERACTION [None]
  - ABDOMINAL WALL HAEMORRHAGE [None]
